FAERS Safety Report 9246834 (Version 3)
Quarter: 2013Q2

REPORT INFORMATION
  Report Type: Spontaneous
  Country: FR (occurrence: FR)
  Receive Date: 20130422
  Receipt Date: 20130520
  Transmission Date: 20140414
  Serious: Yes (Hospitalization)
  Sender: FDA-Public Use
  Company Number: FR-PFIZER INC-2013120106

PATIENT
  Age: 70 Year
  Sex: Male

DRUGS (16)
  1. ZYVOXID [Suspect]
     Indication: SEPSIS
     Dosage: 600 MG, 2X/DAY
     Route: 048
     Dates: start: 20130307, end: 20130313
  2. ZYVOXID [Suspect]
     Indication: DEVICE RELATED INFECTION
  3. VANCOMYCIN HYDROCHLORIDE [Suspect]
     Indication: SEPSIS
     Dosage: 2 G, DAILY
     Route: 042
     Dates: start: 20130206, end: 20130226
  4. VANCOMYCIN HYDROCHLORIDE [Suspect]
     Indication: DEVICE RELATED INFECTION
     Dosage: 2 G, DAILY
     Route: 042
     Dates: start: 20130304, end: 20130305
  5. VANCOMYCIN HYDROCHLORIDE [Suspect]
     Dosage: 0.5 G, DAILY
     Route: 042
     Dates: start: 20130306, end: 20130307
  6. PIPERACILLIN SODIUM W/TAZOBACTAM SODIUM [Suspect]
     Dosage: 4 G, 3X/DAY
     Route: 042
     Dates: start: 20130206, end: 20130226
  7. BACTRIM [Suspect]
     Dosage: 3 G, WEEKLY
     Dates: start: 20130210, end: 20130314
  8. ACICLOVIR [Suspect]
     Dosage: 250 MG, 3X/DAY
     Route: 042
     Dates: start: 20130218, end: 20130301
  9. ZELITREX [Suspect]
     Dosage: 500 MG, 1X/DAY
     Route: 048
     Dates: start: 20130301, end: 20130314
  10. TAHOR [Concomitant]
     Dosage: 40MG, 1 DF IN THE EVENING
  11. METOPROLOL [Concomitant]
     Dosage: 50MG, 1 DF IN THE MORNING AND IN THE EVENING
  12. JANUMET [Concomitant]
     Dosage: 50MG, 1 DF IN THE MORNING AND IN THE EVENING
  13. IDARUBICIN [Concomitant]
     Indication: CHEMOTHERAPY
     Dosage: 15 MG OVER 3 DAYS
     Dates: start: 20130206
  14. ARACYTINE [Concomitant]
     Indication: CHEMOTHERAPY
     Dosage: UNK
     Route: 037
     Dates: start: 20130206
  15. METHOTREXATE [Concomitant]
     Indication: CHEMOTHERAPY
     Dosage: UNK
     Route: 037
     Dates: start: 20130206
  16. CYTARABINE [Concomitant]
     Indication: CHEMOTHERAPY
     Dosage: 190 MG FOR 5 DAYS
     Dates: start: 20130206

REACTIONS (1)
  - Drug reaction with eosinophilia and systemic symptoms [Recovering/Resolving]
